FAERS Safety Report 6846989-2 (Version None)
Quarter: 2010Q3

REPORT INFORMATION
  Report Type: 
  Country: None (occurrence: None)
  Receive Date: 20100713
  Receipt Date: 20100701
  Transmission Date: 20110219
  Serious: Yes (Hospitalization)
  Sender: FDA-Public Use
  Company Number: MPS1-1000336

PATIENT
  Age: 2 Year
  Sex: Male
  Weight: 13 kg

DRUGS (2)
  1. ALDURAZYME [Suspect]
     Indication: MUCOPOLYSACCHARIDOSIS I
     Dosage: 0.44 MG/KG, QOW, INTRAVENOUS; 0.44 MG/KG,
     Route: 042
     Dates: start: 20090701, end: 20100512
  2. ALDURAZYME [Suspect]
     Indication: MUCOPOLYSACCHARIDOSIS I
     Dosage: 0.44 MG/KG, QOW, INTRAVENOUS; 0.44 MG/KG,
     Route: 042
     Dates: start: 20100602

REACTIONS (1)
  - BRONCHOPNEUMONIA [None]
